FAERS Safety Report 21391209 (Version 1)
Quarter: 2022Q3

REPORT INFORMATION
  Report Type: Spontaneous
  Country: US (occurrence: None)
  Receive Date: 20220927
  Receipt Date: 20220927
  Transmission Date: 20221027
  Serious: Yes (Hospitalization)
  Sender: FDA-Public Use
  Company Number: None

PATIENT
  Age: 55 Year
  Sex: Male
  Weight: 115 kg

DRUGS (2)
  1. WARFARIN [Suspect]
     Active Substance: WARFARIN
     Indication: Aortic valve replacement
     Dosage: FREQUENCY : DAILY;?
     Route: 048
     Dates: start: 20220826, end: 20220916
  2. ENOXAPARIN [Concomitant]
     Active Substance: ENOXAPARIN
     Dates: start: 20220826

REACTIONS (3)
  - Skin necrosis [None]
  - Contusion [None]
  - Flank pain [None]

NARRATIVE: CASE EVENT DATE: 20220831
